FAERS Safety Report 12552496 (Version 3)
Quarter: 2018Q4

REPORT INFORMATION
  Report Type: Spontaneous
  Country: US (occurrence: US)
  Receive Date: 20160713
  Receipt Date: 20181109
  Transmission Date: 20190204
  Serious: Yes (Hospitalization, Other)
  Sender: FDA-Public Use
  Company Number: US-PFIZER INC-2015463138

PATIENT
  Age: 60 Year
  Sex: Male

DRUGS (5)
  1. LOTRISONE [Concomitant]
     Active Substance: BETAMETHASONE DIPROPIONATE\CLOTRIMAZOLE
     Dosage: UNK
  2. NEOMYCIN-POLYMYXIN-DEXAMETHASONE [Concomitant]
     Dosage: UNK
     Route: 047
  3. BACTRIM DS [Concomitant]
     Active Substance: SULFAMETHOXAZOLE\TRIMETHOPRIM
     Dosage: UNK (TRIMETHOPRIM 160 MG AND SULFAMETHOXAZOLE 800 MG)
  4. XELJANZ [Suspect]
     Active Substance: TOFACITINIB CITRATE
     Indication: DERMATITIS ATOPIC
     Dosage: 5 MG, 2X/DAY
     Route: 048
     Dates: end: 20160525
  5. KEFLEX [CEFALEXIN] [Concomitant]
     Dosage: 500 MG, UNK

REACTIONS (3)
  - Intestinal perforation [Unknown]
  - Product use in unapproved indication [Unknown]
  - Urticaria [Unknown]
